FAERS Safety Report 4600111-1 (Version None)
Quarter: 2005Q1

REPORT INFORMATION
  Report Type: 
  Country: None (occurrence: None)
  Receive Date: 20050303
  Receipt Date: 20050225
  Transmission Date: 20050727
  Serious: Yes (Other)
  Sender: FDA-Public Use
  Company Number: 2004AP06152

PATIENT
  Age: 19 Year
  Sex: Female
  Weight: 33.4 kg

DRUGS (10)
  1. DIPRIVAN [Suspect]
     Indication: SEDATIVE THERAPY
     Dosage: 159 MG IV
     Route: 042
     Dates: start: 20030825, end: 20030825
  2. DIPRIVAN [Suspect]
     Indication: SEDATIVE THERAPY
     Dates: start: 20030901, end: 20030901
  3. DIPRIVAN [Suspect]
     Indication: SEDATIVE THERAPY
     Dates: start: 20030917, end: 20030917
  4. DIPRIVAN [Suspect]
     Indication: SEDATIVE THERAPY
     Dates: start: 20031003, end: 20031003
  5. DIPRIVAN [Suspect]
     Indication: SEDATIVE THERAPY
     Dates: start: 20031010, end: 20031010
  6. PHENOBARBITAL [Concomitant]
  7. VALPROATE SODIUM [Concomitant]
  8. CLONAZEPAM [Concomitant]
  9. ACETAZOLAMIDE [Concomitant]
  10. FERRIC PYROPHOSPHATE [Concomitant]

REACTIONS (2)
  - CONVULSION [None]
  - PYREXIA [None]
